FAERS Safety Report 23277319 (Version 2)
Quarter: 2024Q1

REPORT INFORMATION
  Report Type: Spontaneous
  Country: US (occurrence: US)
  Receive Date: 20231208
  Receipt Date: 20240223
  Transmission Date: 20240409
  Serious: No
  Sender: FDA-Public Use
  Company Number: US-PFIZER INC-PV202300150906

PATIENT
  Age: 81 Year
  Sex: Female

DRUGS (1)
  1. IBRANCE [Suspect]
     Active Substance: PALBOCICLIB
     Dosage: TAKE 1 TABLET BY MOUTH DAILY. TAKE ON DAYS 1-21 OF 28 DAY CYCLE
     Route: 048

REACTIONS (3)
  - Mental disorder [Unknown]
  - Treatment noncompliance [Unknown]
  - Hypoacusis [Unknown]
